FAERS Safety Report 21351582 (Version 1)
Quarter: 2022Q3

REPORT INFORMATION
  Report Type: Other
  Country: US (occurrence: US)
  Receive Date: 20220919
  Receipt Date: 20220919
  Transmission Date: 20221027
  Serious: Yes (Hospitalization)
  Sender: FDA-Public Use
  Company Number: US-HLS-202202078

PATIENT
  Age: 31 Year
  Sex: Male

DRUGS (1)
  1. CLOZAPINE [Suspect]
     Active Substance: CLOZAPINE
     Indication: Schizophrenia
     Dosage: UPTITRATED TO 25MG TWICE DAILY ON DAY THREE?OF ADMISSION. CLOZAPINE WAS THEN UPTITRATED BY 12.5MG PE
     Route: 048

REACTIONS (9)
  - Hypotension [Recovered/Resolved]
  - Chest pain [Recovered/Resolved]
  - Cardiotoxicity [Recovered/Resolved]
  - C-reactive protein increased [Recovered/Resolved]
  - Myalgia [Recovered/Resolved]
  - Heart rate increased [Recovered/Resolved]
  - Malaise [Recovered/Resolved]
  - Sinus tachycardia [Recovered/Resolved]
  - Troponin I increased [Recovered/Resolved]
